FAERS Safety Report 14693562 (Version 4)
Quarter: 2018Q3

REPORT INFORMATION
  Report Type: Report from Study
  Country: JP (occurrence: JP)
  Receive Date: 20180329
  Receipt Date: 20180730
  Transmission Date: 20181010
  Serious: No
  Sender: FDA-Public Use
  Company Number: JP-ACTELION-A-CH2018-169663

PATIENT
  Age: 38 Year
  Sex: Female
  Weight: 39.1 kg

DRUGS (16)
  1. TRACLEER [Suspect]
     Active Substance: BOSENTAN
     Indication: SCLERODERMA ASSOCIATED DIGITAL ULCER
     Dosage: 62.5 MG, QD
     Route: 048
     Dates: start: 20161201, end: 20180319
  2. BERASUS [Concomitant]
     Active Substance: BERAPROST SODIUM
  3. WARFARIN [Concomitant]
     Active Substance: WARFARIN
  4. TOCOPHERYL NICOTINATE [Concomitant]
     Active Substance: TOCOPHERYL NICOTINATE, D-.ALPHA.
  5. FENTOS [Concomitant]
     Active Substance: FENTANYL
  6. DIART [Concomitant]
     Active Substance: AZOSEMIDE
  7. NIFEDIPINE. [Concomitant]
     Active Substance: NIFEDIPINE
  8. CELECOX [Concomitant]
     Active Substance: CELECOXIB
  9. LANSOPRAZOLE. [Concomitant]
     Active Substance: LANSOPRAZOLE
  10. ATELEC [Concomitant]
     Active Substance: CILNIDIPINE
  11. TAKECAB [Concomitant]
     Active Substance: VONOPRAZAN FUMURATE
  12. ACECOL [Concomitant]
     Active Substance: TEMOCAPRIL HYDROCHLORIDE
  13. REBAMIPIDE [Concomitant]
     Active Substance: REBAMIPIDE
  14. ANPLAG [Concomitant]
     Active Substance: SARPOGRELATE
  15. BERAPROST [Concomitant]
     Active Substance: BERAPROST
  16. PREDNISOLONE. [Concomitant]
     Active Substance: PREDNISOLONE

REACTIONS (1)
  - Exposure during pregnancy [Unknown]

NARRATIVE: CASE EVENT DATE: 20180309
